FAERS Safety Report 4431168-9 (Version None)
Quarter: 2004Q4

REPORT INFORMATION
  Report Type: 
  Country: None (occurrence: None)
  Receive Date: 20040818
  Receipt Date: 20040810
  Transmission Date: 20050328
  Serious: Yes (Hospitalization)
  Sender: FDA-Public Use
  Company Number: SUS1-2004-00463

PATIENT
  Age: 28 Year
  Sex: Male
  Weight: 83.9 kg

DRUGS (4)
  1. ADDERALL XR 10 [Suspect]
     Dosage: 30 MG, 1X/DAY;QD
     Dates: start: 20040701
  2. ADDERALL 10 [Suspect]
     Dosage: SEE IMAGE
     Dates: start: 19940101, end: 19970101
  3. ADDERALL 10 [Suspect]
     Dosage: SEE IMAGE
  4. ADDERALL 10 [Suspect]
     Dosage: SEE IMAGE

REACTIONS (4)
  - CARDIOMYOPATHY [None]
  - HYPERTENSION [None]
  - MYOCARDIAL INFARCTION [None]
  - OFF LABEL USE [None]
